FAERS Safety Report 5849081-9 (Version None)
Quarter: 2008Q3

REPORT INFORMATION
  Report Type: 
  Country: None (occurrence: None)
  Receive Date: 20080819
  Receipt Date: 20080812
  Transmission Date: 20090109
  Serious: Yes (Death, Hospitalization)
  Sender: FDA-Public Use
  Company Number: PHBS2008TR05392

PATIENT
  Age: 42 Year
  Sex: Female

DRUGS (2)
  1. GLEEVEC [Suspect]
     Indication: ENDOMETRIAL SARCOMA
     Dosage: 400 MG/DAY
  2. GLEEVEC [Suspect]
     Dosage: 300MG/DAY

REACTIONS (9)
  - ABDOMINAL CAVITY DRAINAGE [None]
  - ANGIOPATHY [None]
  - ASCITES [None]
  - DISSEMINATED INTRAVASCULAR COAGULATION [None]
  - PULMONARY HYPERTENSION [None]
  - RIGHT VENTRICULAR FAILURE [None]
  - SEPSIS [None]
  - SURGERY [None]
  - TRICUSPID VALVE INCOMPETENCE [None]
